FAERS Safety Report 7059913-7 (Version None)
Quarter: 2010Q4

REPORT INFORMATION
  Report Type: 
  Country: None (occurrence: None)
  Receive Date: 20101025
  Receipt Date: 20101018
  Transmission Date: 20110411
  Serious: Yes (Hospitalization)
  Sender: FDA-Public Use
  Company Number: DE-ELI_LILLY_AND_COMPANY-DE201009006760

PATIENT
  Sex: Male
  Weight: 68.8 kg

DRUGS (5)
  1. NECITUMUMAB (11F8) (LY3012211) [Suspect]
     Indication: NON-SMALL CELL LUNG CANCER
     Dosage: 800 MG, UNK
     Dates: start: 20100812
  2. GEMCITABINE HCL [Suspect]
     Indication: NON-SMALL CELL LUNG CANCER
     Dosage: 2288 MG, UNK
     Dates: start: 20100812
  3. CISPLATIN [Suspect]
     Indication: NON-SMALL CELL LUNG CANCER
     Dosage: 137 MG, UNK
     Dates: start: 20100812
  4. ASPIRIN [Concomitant]
     Dosage: 100 D/F, UNK
  5. SPIRIVA [Concomitant]

REACTIONS (1)
  - ARTERIAL THROMBOSIS [None]
